FAERS Safety Report 18672415 (Version 1)
Quarter: 2020Q4

REPORT INFORMATION
  Report Type: Other
  Country: DE (occurrence: DE)
  Receive Date: 20201229
  Receipt Date: 20201229
  Transmission Date: 20210114
  Serious: Yes (Hospitalization, Other)
  Sender: FDA-Public Use
  Company Number: DE-ROCHE-2582624

PATIENT
  Age: 55 Year
  Sex: Male

DRUGS (16)
  1. PREGABALIN. [Concomitant]
     Active Substance: PREGABALIN
     Dosage: AT NIGHT
  2. ASPIRIN. [Concomitant]
     Active Substance: ASPIRIN
     Dosage: IN THE EVENING
  3. IMIGRAN [Concomitant]
     Active Substance: SUMATRIPTAN SUCCINATE
     Indication: CLUSTER HEADACHE
     Dosage: 15 L O2 SPRAYED AT BROW OVER NOSE
  4. PRAMIPEXOL [Suspect]
     Active Substance: PRAMIPEXOLE
     Indication: PRODUCT USED FOR UNKNOWN INDICATION
     Dosage: 0.35 MG IN THE MORNING AND 0.26 MG RET. AT NIGHT
     Route: 065
  5. LATANOPROST. [Concomitant]
     Active Substance: LATANOPROST
     Dosage: AT NIGHT
  6. VERAPAMIL [Concomitant]
     Active Substance: VERAPAMIL HYDROCHLORIDE
     Dosage: 120 RET
  7. SYMBICORT [Concomitant]
     Active Substance: BUDESONIDE\FORMOTEROL FUMARATE DIHYDRATE
     Dosage: 160 / 4.5 2 PUMPS
  8. PREGABALIN. [Concomitant]
     Active Substance: PREGABALIN
     Route: 065
  9. PREGABALIN. [Concomitant]
     Active Substance: PREGABALIN
     Dosage: FOR THE NIGHT
  10. DEKRISTOL [Concomitant]
     Active Substance: CHOLECALCIFEROL
  11. DEKRISTOL [Concomitant]
     Active Substance: CHOLECALCIFEROL
  12. SYMBICORT [Concomitant]
     Active Substance: BUDESONIDE\FORMOTEROL FUMARATE DIHYDRATE
     Dosage: 160 / 4.5 2 PUMPS
  13. OXYGEN. [Concomitant]
     Active Substance: OXYGEN
     Indication: CLUSTER HEADACHE
     Route: 045
  14. OCREVUS [Suspect]
     Active Substance: OCRELIZUMAB
     Indication: RELAPSING-REMITTING MULTIPLE SCLEROSIS
     Route: 042
     Dates: start: 20200320
  15. OCREVUS [Suspect]
     Active Substance: OCRELIZUMAB
     Route: 042
     Dates: start: 20201006
  16. AMLODIPIN [Concomitant]
     Active Substance: AMLODIPINE BESYLATE
     Dosage: IN THE EVENING

REACTIONS (27)
  - Dry skin [Recovering/Resolving]
  - Cough [Recovered/Resolved]
  - Feeling cold [Not Recovered/Not Resolved]
  - Gait disturbance [Not Recovered/Not Resolved]
  - Rash [Not Recovered/Not Resolved]
  - Uhthoff^s phenomenon [Recovering/Resolving]
  - Liver function test increased [Not Recovered/Not Resolved]
  - Dizziness [Recovering/Resolving]
  - Throat irritation [Not Recovered/Not Resolved]
  - Tracheal inflammation [Not Recovered/Not Resolved]
  - Skin exfoliation [Not Recovered/Not Resolved]
  - Skin fissures [Recovering/Resolving]
  - Dysstasia [Not Recovered/Not Resolved]
  - Nasopharyngitis [Recovered/Resolved]
  - C-reactive protein increased [Unknown]
  - Gamma-glutamyltransferase increased [Not Recovered/Not Resolved]
  - Muscle spasticity [Not Recovered/Not Resolved]
  - Gastritis [Unknown]
  - Rash macular [Unknown]
  - Decreased appetite [Unknown]
  - Inflammatory marker increased [Not Recovered/Not Resolved]
  - Myalgia [Recovering/Resolving]
  - Upper respiratory tract infection [Not Recovered/Not Resolved]
  - Weight decreased [Unknown]
  - Fatigue [Unknown]
  - Paraesthesia [Not Recovered/Not Resolved]
  - Pallor [Recovered/Resolved]

NARRATIVE: CASE EVENT DATE: 20200515
